FAERS Safety Report 9114918 (Version 3)
Quarter: 2013Q1

REPORT INFORMATION
  Report Type: Spontaneous
  Country: US (occurrence: US)
  Receive Date: 20130225
  Receipt Date: 20130329
  Transmission Date: 20140127
  Serious: Yes (Other)
  Sender: FDA-Public Use
  Company Number: US-ELI_LILLY_AND_COMPANY-US201302005331

PATIENT
  Sex: Female
  Weight: 54.88 kg

DRUGS (11)
  1. FORTEO [Suspect]
     Indication: OSTEOPOROSIS
     Dosage: 20 UG, QD
     Dates: start: 201209
  2. FORTEO [Suspect]
     Dosage: 20 UG, QD
  3. SYNTHROID [Concomitant]
     Dosage: UNK
  4. CALCIUM [Concomitant]
  5. VITAMIN B12 [Concomitant]
  6. JANUVIA [Concomitant]
  7. SIMVASTATIN [Concomitant]
  8. GLIMEPIRIDE [Concomitant]
  9. ASPIRIN [Concomitant]
  10. ACTOS [Concomitant]
  11. TYLENOL                                 /SCH/ [Concomitant]

REACTIONS (1)
  - Malignant melanoma [Recovered/Resolved]
